FAERS Safety Report 7685324-7 (Version None)
Quarter: 2011Q3

REPORT INFORMATION
  Report Type: 
  Country: None (occurrence: None)
  Receive Date: 20110815
  Receipt Date: 20110815
  Transmission Date: 20111222
  Serious: No
  Sender: FDA-Public Use
  Company Number: None

PATIENT
  Age: 53 Year
  Sex: Female
  Weight: 68.0396 kg

DRUGS (1)
  1. TAMSULOSIN HCL [Suspect]
     Indication: BLADDER DISORDER
     Dosage: 0.4MG X2 A DAY
     Dates: start: 20010518, end: 20110606

REACTIONS (2)
  - DIARRHOEA [None]
  - MEDICATION RESIDUE [None]
